FAERS Safety Report 20734540 (Version 1)
Quarter: 2022Q2

REPORT INFORMATION
  Report Type: Spontaneous
  Country: US (occurrence: None)
  Receive Date: 20220420
  Receipt Date: 20220420
  Transmission Date: 20220720
  Serious: Yes (Death)
  Sender: FDA-Public Use
  Company Number: None

PATIENT
  Age: 72 Year
  Sex: Male

DRUGS (1)
  1. IMATINIB MESYLATE [Suspect]
     Active Substance: IMATINIB MESYLATE
     Dosage: FREQUENCY : DAILY;?
     Route: 048
     Dates: start: 202101, end: 20220403

REACTIONS (1)
  - Death [None]

NARRATIVE: CASE EVENT DATE: 20220414
